FAERS Safety Report 8871928 (Version 1)
Quarter: 2012Q4

REPORT INFORMATION
  Report Type: 
  Country: GB (occurrence: GB)
  Receive Date: 20121029
  Receipt Date: 20121029
  Transmission Date: 20130627
  Serious: Yes (Other)
  Sender: FDA-Public Use
  Company Number: GB-MERCK-1210GBR012136

PATIENT
  Age: 48 Year
  Sex: Female

DRUGS (4)
  1. THERAPY UNSPECIFIED [Suspect]
     Indication: HYPOTHYROIDISM
     Dosage: UNK
     Dates: end: 20121003
  2. ALDACTONE TABLETS [Concomitant]
  3. LIOTHYRONINE SODIUM [Concomitant]
  4. METFORMIN [Concomitant]

REACTIONS (3)
  - Interstitial lung disease [Unknown]
  - Chest X-ray abnormal [Unknown]
  - Pain [Unknown]
